FAERS Safety Report 20685803 (Version 1)
Quarter: 2022Q2

REPORT INFORMATION
  Report Type: Spontaneous
  Country: US (occurrence: US)
  Receive Date: 20220407
  Receipt Date: 20220407
  Transmission Date: 20220721
  Serious: No
  Sender: FDA-Public Use
  Company Number: US-PFIZER INC-202101834846

PATIENT
  Age: 85 Year
  Sex: Female

DRUGS (1)
  1. IBRANCE [Suspect]
     Active Substance: PALBOCICLIB
     Dosage: 100 MG
     Dates: start: 20201007

REACTIONS (1)
  - Neoplasm progression [Unknown]
